FAERS Safety Report 18241784 (Version 1)
Quarter: 2020Q3

REPORT INFORMATION
  Report Type: Spontaneous
  Country: US (occurrence: US)
  Receive Date: 20200905
  Receipt Date: 20200905
  Transmission Date: 20201103
  Serious: No
  Sender: FDA-Public Use
  Company Number: None

PATIENT
  Age: 50 Year
  Sex: Female

DRUGS (1)
  1. EPCLUSA [Suspect]
     Active Substance: SOFOSBUVIR\VELPATASVIR
     Indication: HEPATITIS C
     Route: 049
     Dates: start: 202008

REACTIONS (4)
  - Pyrexia [None]
  - Nausea [None]
  - Vomiting [None]
  - Migraine [None]

NARRATIVE: CASE EVENT DATE: 20200822
